FAERS Safety Report 4759778-X (Version None)
Quarter: 2005Q3

REPORT INFORMATION
  Report Type: 
  Country: None (occurrence: None)
  Receive Date: 20050829
  Receipt Date: 20050519
  Transmission Date: 20060218
  Serious: No
  Sender: FDA-Public Use
  Company Number: S05-USA-02662-01

PATIENT

DRUGS (1)
  1. CAMPRAL [Suspect]
     Indication: ALCOHOLISM
     Dates: start: 20050101

REACTIONS (1)
  - VOMITING [None]
